FAERS Safety Report 13713556 (Version 1)
Quarter: 2017Q3

REPORT INFORMATION
  Report Type: Spontaneous
  Country: US (occurrence: US)
  Receive Date: 20170704
  Receipt Date: 20170704
  Transmission Date: 20171127
  Serious: No
  Sender: FDA-Public Use
  Company Number: US-EMD SERONO-7024156

PATIENT
  Sex: Female

DRUGS (9)
  1. REBIF [Suspect]
     Active Substance: INTERFERON BETA-1A
     Route: 058
     Dates: start: 20160824, end: 201704
  2. ALEVE [Concomitant]
     Active Substance: NAPROXEN SODIUM
     Indication: PREMEDICATION
  3. HYDROCHLOROTHIAZIDE. [Concomitant]
     Active Substance: HYDROCHLOROTHIAZIDE
     Indication: PRODUCT USED FOR UNKNOWN INDICATION
     Dates: end: 2012
  4. REBIF [Suspect]
     Active Substance: INTERFERON BETA-1A
     Indication: MULTIPLE SCLEROSIS
     Route: 058
     Dates: start: 20100802, end: 20120802
  5. VALIUM [Concomitant]
     Active Substance: DIAZEPAM
     Indication: INSOMNIA
  6. OTEZLA [Concomitant]
     Active Substance: APREMILAST
     Indication: PSORIASIS
  7. SORIATANE [Concomitant]
     Active Substance: ACITRETIN
     Indication: PSORIASIS
  8. METHOTREXATE. [Concomitant]
     Active Substance: METHOTREXATE
     Indication: PSORIASIS
  9. METHOTREXATE. [Concomitant]
     Active Substance: METHOTREXATE
     Indication: RHEUMATOID ARTHRITIS
     Dates: end: 2012

REACTIONS (7)
  - Liver function test increased [Unknown]
  - Immune system disorder [Unknown]
  - Pain [Recovering/Resolving]
  - Back pain [Recovering/Resolving]
  - Hot flush [Not Recovered/Not Resolved]
  - Bursitis [Not Recovered/Not Resolved]
  - Psoriasis [Unknown]

NARRATIVE: CASE EVENT DATE: 2012
